FAERS Safety Report 23289952 (Version 1)
Quarter: 2023Q4

REPORT INFORMATION
  Report Type: Other
  Country: CN (occurrence: None)
  Receive Date: 20231212
  Receipt Date: 20231212
  Transmission Date: 20240110
  Serious: Yes (Hospitalization)
  Sender: FDA-Public Use
  Company Number: CN-Square-000188

PATIENT
  Age: 28 Year
  Sex: Female

DRUGS (11)
  1. CALCIUM GLUCONATE [Suspect]
     Active Substance: CALCIUM GLUCONATE
     Indication: Acute generalised exanthematous pustulosis
  2. DEXAMETHASONE [Concomitant]
     Active Substance: DEXAMETHASONE
     Indication: Acute generalised exanthematous pustulosis
     Route: 042
  3. HYDROXYCHLOROQUINE [Concomitant]
     Active Substance: HYDROXYCHLOROQUINE
     Indication: Rheumatoid arthritis
  4. CETIRIZINE [Concomitant]
     Active Substance: CETIRIZINE HYDROCHLORIDE
     Indication: Acute generalised exanthematous pustulosis
  5. KETOTIFEN FUMARATE [Concomitant]
     Active Substance: KETOTIFEN FUMARATE
     Indication: Acute generalised exanthematous pustulosis
  6. METHYLPREDNISOLONE [Concomitant]
     Active Substance: METHYLPREDNISOLONE
     Indication: Acute generalised exanthematous pustulosis
  7. VITAMIN C [Concomitant]
     Active Substance: ASCORBIC ACID
     Indication: Acute generalised exanthematous pustulosis
  8. VITAMIN B12 [Concomitant]
     Active Substance: CYANOCOBALAMIN
     Indication: Acute generalised exanthematous pustulosis
  9. Hydrocortisone butyrate cream [Concomitant]
     Indication: Acute generalised exanthematous pustulosis
  10. POTASSIUM CHLORIDE [Concomitant]
     Active Substance: POTASSIUM CHLORIDE
     Indication: Acute generalised exanthematous pustulosis
  11. PANTOPRAZOLE [Concomitant]
     Active Substance: PANTOPRAZOLE
     Indication: Acute generalised exanthematous pustulosis

REACTIONS (1)
  - Drug ineffective [Unknown]
